FAERS Safety Report 25964949 (Version 2)
Quarter: 2025Q4

REPORT INFORMATION
  Report Type: Spontaneous
  Country: US (occurrence: US)
  Receive Date: 20251027
  Receipt Date: 20251029
  Transmission Date: 20260117
  Serious: Yes (Hospitalization)
  Sender: ABBVIE
  Company Number: US-ABBVIE-6517696

PATIENT
  Age: 23 Year
  Sex: Male

DRUGS (6)
  1. VRAYLAR [Suspect]
     Active Substance: CARIPRAZINE
     Indication: Bipolar I disorder
     Dosage: FORM STRENGTH: 4.5 MILLIGRAM, DURATION TEXT: 7-8 DAYS
     Route: 048
     Dates: start: 202510, end: 202510
  2. VRAYLAR [Suspect]
     Active Substance: CARIPRAZINE
     Indication: Bipolar I disorder
     Dosage: FORM STRENGTH: 1.5 MILLIGRAM,  LAST ADMIN DATE IS SEP 2025
     Route: 048
     Dates: start: 20250925
  3. VRAYLAR [Suspect]
     Active Substance: CARIPRAZINE
     Indication: Bipolar I disorder
     Dosage: FORM STRENGTH: 3 MILLIGRAM
     Route: 048
     Dates: start: 202509, end: 202510
  4. VRAYLAR [Suspect]
     Active Substance: CARIPRAZINE
     Indication: Bipolar I disorder
     Dosage: FORM STRENGTH: 6 MILLIGRAM, DURATION TEXT: 2-3 WEEKS
     Route: 048
     Dates: start: 202510
  5. SEROQUEL [Concomitant]
     Active Substance: QUETIAPINE FUMARATE
     Indication: Product used for unknown indication
     Dosage: 120 MILLIGRAM
  6. BUSPAR [Concomitant]
     Active Substance: BUSPIRONE HYDROCHLORIDE
     Indication: Product used for unknown indication
     Dosage: 20 MILLIGRAM

REACTIONS (6)
  - Hospitalisation [Unknown]
  - Abnormal behaviour [Unknown]
  - Mania [Not Recovered/Not Resolved]
  - Hypersexuality [Unknown]
  - Generalised anxiety disorder [Unknown]
  - Drug ineffective [Unknown]

NARRATIVE: CASE EVENT DATE: 20250101
